FAERS Safety Report 8443551-5 (Version None)
Quarter: 2012Q2

REPORT INFORMATION
  Report Type: 
  Country: None (occurrence: None)
  Receive Date: 20120618
  Receipt Date: 20120611
  Transmission Date: 20120825
  Serious: No
  Sender: FDA-Public Use
  Company Number: US-PFIZER INC-2012141254

PATIENT
  Sex: Male

DRUGS (2)
  1. VIAGRA [Suspect]
     Dosage: UNK
  2. ARTHROTEC [Suspect]
     Indication: MUSCULOSKELETAL DISORDER
     Dosage: UNK

REACTIONS (1)
  - HERNIA [None]
